FAERS Safety Report 24814052 (Version 1)
Quarter: 2025Q1

REPORT INFORMATION
  Report Type: Spontaneous
  Country: US (occurrence: US)
  Receive Date: 20250107
  Receipt Date: 20250107
  Transmission Date: 20250408
  Serious: Yes (Other)
  Sender: MSN LABORATORIES PRIVATE LIMITED
  Company Number: US-MLMSERVICE-20241211-PI292480-00101-1

PATIENT

DRUGS (12)
  1. THIOTEPA [Suspect]
     Active Substance: THIOTEPA
     Indication: Brain neoplasm
     Route: 065
  2. THIOTEPA [Suspect]
     Active Substance: THIOTEPA
     Indication: Bone marrow conditioning regimen
  3. VINCRISTINE [Suspect]
     Active Substance: VINCRISTINE
     Indication: Brain neoplasm
     Route: 065
  4. CISPLATIN [Suspect]
     Active Substance: CISPLATIN
     Indication: Brain neoplasm
     Route: 065
  5. ETOPOSIDE [Suspect]
     Active Substance: ETOPOSIDE
     Indication: Brain neoplasm
     Route: 065
  6. METHOTREXATE [Suspect]
     Active Substance: METHOTREXATE
     Indication: Brain neoplasm
     Route: 065
  7. CARBOPLATIN [Suspect]
     Active Substance: CARBOPLATIN
     Indication: Brain neoplasm
     Route: 065
  8. CARBOPLATIN [Suspect]
     Active Substance: CARBOPLATIN
     Indication: Bone marrow conditioning regimen
  9. TOPOTECAN [Suspect]
     Active Substance: TOPOTECAN HYDROCHLORIDE
     Indication: Brain neoplasm
     Dosage: EVERY FOUR WEEKS (0.2MG PER DOSE LESS THAN 1 YEAR OLD, 0.25MG PER DOSE WHEN MORE
     Route: 037
  10. VORINOSTAT [Suspect]
     Active Substance: VORINOSTAT
     Indication: Brain neoplasm
     Route: 048
  11. ISOTRETINOIN [Suspect]
     Active Substance: ISOTRETINOIN
     Indication: Brain neoplasm
     Dosage: 80 MG/M2 EVERY 12 HOURS
     Route: 048
  12. CYCLOPHOSPHAMIDE [Suspect]
     Active Substance: CYCLOPHOSPHAMIDE
     Indication: Brain neoplasm
     Route: 065

REACTIONS (7)
  - Choking [Unknown]
  - Pseudomonas infection [Unknown]
  - Febrile neutropenia [Unknown]
  - Epistaxis [Unknown]
  - Mucosal inflammation [Unknown]
  - Respiratory arrest [Unknown]
  - Sepsis [Unknown]
